FAERS Safety Report 7179954-9 (Version None)
Quarter: 2010Q4

REPORT INFORMATION
  Report Type: 
  Country: None (occurrence: None)
  Receive Date: 20101123
  Receipt Date: 20100809
  Transmission Date: 20110411
  Serious: No
  Sender: FDA-Public Use
  Company Number: 016926

PATIENT
  Sex: Female
  Weight: 81.6 kg

DRUGS (3)
  1. CIMZIA [Suspect]
     Indication: RHEUMATOID ARTHRITIS
     Dosage: (^2 SHOTS MONTHLY^  SUBCUTANEOUS)
     Route: 058
     Dates: start: 20100615
  2. PREDNISONE [Concomitant]
  3. METHOTREXATE [Concomitant]

REACTIONS (2)
  - ABSCESS RUPTURE [None]
  - FURUNCLE [None]
